FAERS Safety Report 7398796-2 (Version None)
Quarter: 2011Q2

REPORT INFORMATION
  Report Type: 
  Country: None (occurrence: None)
  Receive Date: 20110404
  Receipt Date: 20110404
  Transmission Date: 20111010
  Serious: Yes (Other)
  Sender: FDA-Public Use
  Company Number: None

PATIENT
  Age: 47 Year
  Sex: Female
  Weight: 69.4003 kg

DRUGS (1)
  1. METOPROLOL SUCCINATE EXTENDED RELEASE [Suspect]
     Indication: HEART RATE INCREASED
     Dates: start: 20110329, end: 20110402

REACTIONS (11)
  - FATIGUE [None]
  - PAIN [None]
  - NAUSEA [None]
  - DIZZINESS [None]
  - DIARRHOEA [None]
  - HEADACHE [None]
  - ABNORMAL DREAMS [None]
  - ASTHENIA [None]
  - ABDOMINAL PAIN UPPER [None]
  - FEELING ABNORMAL [None]
  - CONFUSIONAL STATE [None]
